FAERS Safety Report 24861975 (Version 2)
Quarter: 2025Q1

REPORT INFORMATION
  Report Type: Spontaneous
  Country: GB (occurrence: GB)
  Receive Date: 20250120
  Receipt Date: 20250127
  Transmission Date: 20250408
  Serious: Yes (Other)
  Sender: GLAXOSMITHKLINE
  Company Number: None

PATIENT

DRUGS (4)
  1. FLUTICASONE PROPIONATE [Suspect]
     Active Substance: FLUTICASONE PROPIONATE
     Indication: Rhinitis
     Dosage: 200 UG, BID (50MCG/SPRAY INTO EACH NOSTRIL TWICE, TWO TIMES A DAY)
     Route: 045
     Dates: start: 20250103, end: 20250110
  2. FEXOFENADINE [Concomitant]
     Active Substance: FEXOFENADINE HYDROCHLORIDE
     Indication: Nasal congestion
     Route: 065
     Dates: start: 20250103
  3. CARBOXYMETHYLCELLULOSE [Concomitant]
     Active Substance: CARBOXYMETHYLCELLULOSE
     Indication: Dry eye
     Route: 065
  4. XAILIN NIGHT [Concomitant]
     Indication: Dry eye
     Route: 065

REACTIONS (2)
  - Vitreous floaters [Unknown]
  - Headache [Unknown]

NARRATIVE: CASE EVENT DATE: 20250108
